FAERS Safety Report 21092655 (Version 1)
Quarter: 2022Q3

REPORT INFORMATION
  Report Type: Report from Study
  Country: CA (occurrence: CA)
  Receive Date: 20220718
  Receipt Date: 20220718
  Transmission Date: 20221027
  Serious: Yes (Other)
  Sender: FDA-Public Use
  Company Number: CA-JNJFOC-20220713534

PATIENT
  Sex: Male

DRUGS (1)
  1. IMBRUVICA [Suspect]
     Active Substance: IBRUTINIB
     Indication: Chronic lymphocytic leukaemia
     Dosage: TOTAL DOSE WAS CONSIDERED AS 420 MG .
     Route: 048
     Dates: start: 20220311

REACTIONS (2)
  - Knee arthroplasty [Not Recovered/Not Resolved]
  - Off label use [Unknown]
